FAERS Safety Report 10247497 (Version 1)
Quarter: 2014Q1

REPORT INFORMATION
  Report Type: Spontaneous
  Country: US (occurrence: None)
  Receive Date: 20140306
  Receipt Date: 20140306
  Transmission Date: 20141002
  Serious: Yes (Other)
  Sender: FDA-Public Use
  Company Number: 163-21880-13043712

PATIENT
  Age: 72 Year
  Sex: Male

DRUGS (8)
  1. REVLIMID (LENALIDOMIDE) (10 MILLIGRAM, CAPSULES) [Suspect]
     Indication: PLASMA CELL MYELOMA
     Dosage: 10 MG, 21 IN 28 D, PO
     Route: 048
     Dates: start: 20121221
  2. DEXAMETHASONE (DEXAMETHASONE) (UNKNOWN) [Concomitant]
  3. WARFARIN (WARFARIN) (UNKNOWN) [Concomitant]
  4. TESTIM (TESTOSTERONE) (GEL) [Concomitant]
  5. VITAMIN B12 (CYANOCOBALAMIN) (UNKNOWN) [Concomitant]
  6. FOLIC ACID (FOLIC ACID) (UNKNOWN) [Concomitant]
  7. VELCADE (BORTEZOMIB) (UNKNOWN) [Concomitant]
  8. TAMSULOSIN HCL (TAMSULOSIN HYDROCHLORIDE) (UNKNOWN) [Concomitant]

REACTIONS (4)
  - Thrombosis [None]
  - Drug dose omission [None]
  - Fatigue [None]
  - Neuropathy peripheral [None]
